FAERS Safety Report 13112874 (Version 2)
Quarter: 2017Q1

REPORT INFORMATION
  Report Type: Spontaneous
  Country: US (occurrence: US)
  Receive Date: 20170113
  Receipt Date: 20170118
  Transmission Date: 20170428
  Serious: Yes (Hospitalization, Other)
  Sender: FDA-Public Use
  Company Number: US-TEVA-729467USA

PATIENT
  Age: 59 Year
  Sex: Female
  Weight: 96 kg

DRUGS (1)
  1. PANTOPRAZOLE [Suspect]
     Active Substance: PANTOPRAZOLE SODIUM
     Indication: GASTROOESOPHAGEAL REFLUX DISEASE

REACTIONS (3)
  - Transient ischaemic attack [Unknown]
  - Dysarthria [Unknown]
  - Paraesthesia [Unknown]

NARRATIVE: CASE EVENT DATE: 201701
